FAERS Safety Report 10142117 (Version 2)
Quarter: 2014Q2

REPORT INFORMATION
  Report Type: Spontaneous
  Country: CA (occurrence: CA)
  Receive Date: 20140429
  Receipt Date: 20140429
  Transmission Date: 20141212
  Serious: Yes (Hospitalization)
  Sender: FDA-Public Use
  Company Number: CA-ALLERGAN-0600265US

PATIENT
  Age: 9 Month
  Sex: Male
  Weight: 9.4 kg

DRUGS (2)
  1. BOTOX [Suspect]
     Indication: TALIPES
     Dosage: 94 UNITS, SINGLE
     Dates: start: 20050712, end: 20050712
  2. BOTOX [Suspect]

REACTIONS (2)
  - Myelitis transverse [Recovering/Resolving]
  - Nervous system disorder [Recovering/Resolving]
